FAERS Safety Report 24250232 (Version 1)
Quarter: 2024Q3

REPORT INFORMATION
  Report Type: Spontaneous
  Country: US (occurrence: US)
  Receive Date: 20240826
  Receipt Date: 20240826
  Transmission Date: 20241017
  Serious: No
  Sender: pharmaAND
  Company Number: US-PHARMAAND GMBH-2024PHR00152

PATIENT
  Sex: Male
  Weight: 95.238 kg

DRUGS (3)
  1. PEGASYS [Suspect]
     Active Substance: PEGINTERFERON ALFA-2A
     Indication: Macular oedema
     Dosage: 0.4 ML, 1X/WEEK
  2. PEGASYS [Suspect]
     Active Substance: PEGINTERFERON ALFA-2A
     Dosage: 0.8 ML, 1X/WEEK
  3. LEVOTHYROXINE [Concomitant]
     Active Substance: LEVOTHYROXINE\LEVOTHYROXINE SODIUM

REACTIONS (2)
  - Drug resistance [Recovering/Resolving]
  - Drug ineffective for unapproved indication [Recovering/Resolving]
